FAERS Safety Report 5488559-7 (Version None)
Quarter: 2007Q4

REPORT INFORMATION
  Report Type: 
  Country: None (occurrence: None)
  Receive Date: 20071017
  Receipt Date: 20071011
  Transmission Date: 20080405
  Serious: Yes (Other)
  Sender: FDA-Public Use
  Company Number: SK-SANOFI-SYNTHELABO-A01200707213

PATIENT
  Sex: Female

DRUGS (1)
  1. ELOXATIN [Suspect]
     Indication: COLORECTAL CANCER
     Dosage: UNK

REACTIONS (5)
  - AGITATION [None]
  - CIRCULATORY COLLAPSE [None]
  - DEPRESSION [None]
  - SUICIDAL IDEATION [None]
  - SYNCOPE [None]
